FAERS Safety Report 10832099 (Version 1)
Quarter: 2015Q1

REPORT INFORMATION
  Report Type: Spontaneous
  Country: CA (occurrence: CA)
  Receive Date: 20150219
  Receipt Date: 20150219
  Transmission Date: 20150721
  Serious: Yes (Other)
  Sender: FDA-Public Use
  Company Number: CA-GSKJP-KK201416532GSK1550188002

PATIENT
  Age: 57 Year
  Sex: Female
  Weight: 68 kg

DRUGS (1)
  1. BENLYSTA [Suspect]
     Active Substance: BELIMUMAB
     Indication: SYSTEMIC LUPUS ERYTHEMATOSUS
     Dosage: 0, 2, 4, THEN EVERY 4 WEEKS
     Route: 042
     Dates: start: 20140618

REACTIONS (4)
  - Suicidal ideation [Recovered/Resolved]
  - Malaise [Unknown]
  - Pneumothorax [Unknown]
  - Retinal scar [Unknown]

NARRATIVE: CASE EVENT DATE: 201406
